FAERS Safety Report 10931058 (Version 1)
Quarter: 2015Q1

REPORT INFORMATION
  Report Type: Spontaneous
  Country: US (occurrence: US)
  Receive Date: 20150319
  Receipt Date: 20150319
  Transmission Date: 20150721
  Serious: No
  Sender: FDA-Public Use
  Company Number: US-BAUSCH-SYM-2014-20732

PATIENT
  Sex: Female

DRUGS (2)
  1. TRETINOIN CREAM 0.05% [Suspect]
     Active Substance: TRETINOIN
     Indication: PRODUCT USED FOR UNKNOWN INDICATION
     Route: 061
     Dates: start: 2014
  2. NU-DERM SYSTEM NORMAL-DRY SKIN TRANSFORMATION [Suspect]
     Active Substance: HYDROQUINONE\OCTINOXATE\ZINC OXIDE
     Indication: PRODUCT USED FOR UNKNOWN INDICATION
     Route: 061
     Dates: start: 2014

REACTIONS (3)
  - Application site acne [Unknown]
  - Application site dryness [Unknown]
  - Application site exfoliation [Unknown]

NARRATIVE: CASE EVENT DATE: 2014
